FAERS Safety Report 9648960 (Version 1)
Quarter: 2013Q4

REPORT INFORMATION
  Report Type: Spontaneous
  Country: CH (occurrence: CH)
  Receive Date: 20131028
  Receipt Date: 20131028
  Transmission Date: 20140711
  Serious: Yes (Other)
  Sender: FDA-Public Use
  Company Number: CH-PFIZER INC-2013305296

PATIENT
  Age: 67 Year
  Sex: Male
  Weight: 70 kg

DRUGS (15)
  1. TAZOBAC [Suspect]
     Indication: PYREXIA
     Dosage: UNK
     Dates: start: 20130824, end: 20130826
  2. TAZOBAC [Suspect]
     Dosage: UNK
     Route: 041
     Dates: start: 20130829, end: 20130905
  3. VALTREX [Concomitant]
     Dosage: 500 MG, 2X/DAY
     Route: 048
  4. PANTOZOL [Concomitant]
     Dosage: 40 MG, 2X/DAY
     Route: 048
     Dates: end: 20130908
  5. PANTOZOL [Concomitant]
     Dosage: 40 MG, 1X/DAY
     Route: 048
     Dates: start: 20130909
  6. NOPIL [Concomitant]
     Dosage: 2 DF, 3X/WEEK
     Route: 041
  7. MERONEM [Concomitant]
     Dosage: 1 G, 3X/DAY (EVERY 8 HOURS)
     Route: 042
     Dates: start: 20130905, end: 201309
  8. MERONEM [Concomitant]
     Dosage: UNK
     Dates: start: 20130826, end: 20130829
  9. CANCIDAS [Concomitant]
     Dosage: 50 MG, DAILY
     Route: 041
     Dates: start: 20130826, end: 20130916
  10. VANCOMYCIN [Concomitant]
     Dosage: 1 G, 2X/DAY
     Route: 041
     Dates: start: 20130903, end: 20130912
  11. VANCOMYCIN [Concomitant]
     Dosage: UNK
     Dates: start: 20130822, end: 20130823
  12. FORTECORTIN [Concomitant]
     Dosage: 2 MG, 2X/DAY
     Route: 048
     Dates: start: 201308, end: 20130909
  13. LASIX [Concomitant]
     Dosage: 20 MG, DAILY
     Route: 048
     Dates: end: 20130908
  14. MORPHIN [Concomitant]
     Dosage: UNK
     Dates: end: 201309
  15. CELEBREX [Concomitant]
     Dosage: 200 MG, DAILY
     Route: 048
     Dates: end: 20130909

REACTIONS (2)
  - Cholestatic liver injury [Recovering/Resolving]
  - Rash [Recovered/Resolved]
